FAERS Safety Report 8198900-2 (Version None)
Quarter: 2012Q1

REPORT INFORMATION
  Report Type: 
  Country: None (occurrence: None)
  Receive Date: 20120309
  Receipt Date: 20120224
  Transmission Date: 20120608
  Serious: No
  Sender: FDA-Public Use
  Company Number: US-AMGEN-USASP2011058517

PATIENT
  Age: 79 Year
  Sex: Female
  Weight: 56.236 kg

DRUGS (7)
  1. COQ10                              /00517201/ [Concomitant]
  2. PROLIA [Suspect]
     Indication: OSTEOPOROSIS
     Dosage: 60 MG, Q6MO
     Route: 058
     Dates: start: 20110926, end: 20110926
  3. CALCIUM [Concomitant]
  4. OMEGA 3                            /01334101/ [Concomitant]
  5. VITAMIN D [Concomitant]
  6. SIMVASTATIN [Concomitant]
  7. ASPIRIN [Concomitant]

REACTIONS (6)
  - PRURITUS [None]
  - RASH PRURITIC [None]
  - RASH PAPULAR [None]
  - ARTHROPOD BITE [None]
  - RASH MACULO-PAPULAR [None]
  - RASH ERYTHEMATOUS [None]
